FAERS Safety Report 13840270 (Version 1)
Quarter: 2017Q3

REPORT INFORMATION
  Report Type: Spontaneous
  Country: US (occurrence: US)
  Receive Date: 20170807
  Receipt Date: 20170807
  Transmission Date: 20171127
  Serious: No
  Sender: FDA-Public Use
  Company Number: US-ALLERGAN-1509088US

PATIENT
  Sex: Female

DRUGS (3)
  1. LEVOBUNOLOL HCL, 0.25% [Suspect]
     Active Substance: LEVOBUNOLOL HYDROCHLORIDE
     Indication: GLAUCOMA
     Dosage: 2 GTT, QD
     Route: 047
     Dates: end: 20150513
  2. LIPITOR [Concomitant]
     Active Substance: ATORVASTATIN CALCIUM
     Indication: BLOOD CHOLESTEROL INCREASED
     Dosage: 5 MG, QD
     Route: 048
  3. HYDROCHLOROTHIAZIDE. [Concomitant]
     Active Substance: HYDROCHLOROTHIAZIDE
     Indication: BLOOD PRESSURE MEASUREMENT
     Dosage: 6.25 MG, QD
     Route: 048

REACTIONS (2)
  - Dermatitis [Unknown]
  - Blepharitis [Not Recovered/Not Resolved]
